FAERS Safety Report 14845176 (Version 1)
Quarter: 2018Q2

REPORT INFORMATION
  Report Type: Spontaneous
  Country: US (occurrence: US)
  Receive Date: 20180504
  Receipt Date: 20180504
  Transmission Date: 20180711
  Serious: No
  Sender: FDA-Public Use
  Company Number: US-TEVA-803842ACC

PATIENT
  Sex: Female
  Weight: 135.29 kg

DRUGS (2)
  1. SULINDAC. [Suspect]
     Active Substance: SULINDAC
     Indication: NEURALGIA
     Dosage: 2 DOSAGE FORMS DAILY;
     Route: 048
  2. SULINDAC. [Suspect]
     Active Substance: SULINDAC
     Indication: ARTHRALGIA

REACTIONS (1)
  - Drug ineffective [Unknown]
